FAERS Safety Report 10368537 (Version 1)
Quarter: 2014Q3

REPORT INFORMATION
  Report Type: Spontaneous
  Country: US (occurrence: US)
  Receive Date: 20140807
  Receipt Date: 20140807
  Transmission Date: 20150326
  Serious: Yes (Hospitalization)
  Sender: FDA-Public Use
  Company Number: US-GLAXOSMITHKLINE-A1083368A

PATIENT
  Age: 77 Year
  Sex: Female

DRUGS (10)
  1. XARELTO [Concomitant]
     Active Substance: RIVAROXABAN
  2. AMLODIPINE [Concomitant]
     Active Substance: AMLODIPINE BESYLATE
  3. VENTOLIN [Concomitant]
     Active Substance: ALBUTEROL SULFATE
  4. CARVEDILOL. [Concomitant]
     Active Substance: CARVEDILOL
  5. LISINOPRIL. [Concomitant]
     Active Substance: LISINOPRIL
  6. ADVAIR HFA [Suspect]
     Active Substance: FLUTICASONE PROPIONATE\SALMETEROL XINAFOATE
     Indication: ASTHMA
     Dosage: 1PUFF TWICE PER DAY
     Route: 055
  7. ALBUTEROL NEBULIZER [Concomitant]
     Active Substance: ALBUTEROL
  8. SINGULAIR [Concomitant]
     Active Substance: MONTELUKAST SODIUM
  9. OMEPRAZOLE. [Concomitant]
     Active Substance: OMEPRAZOLE
  10. LASIX [Concomitant]
     Active Substance: FUROSEMIDE

REACTIONS (4)
  - Cardiac failure congestive [Recovered/Resolved]
  - Atrial fibrillation [Recovered/Resolved]
  - Drug ineffective [Unknown]
  - Cardiac pacemaker insertion [Recovered/Resolved]

NARRATIVE: CASE EVENT DATE: 201012
